FAERS Safety Report 22610443 (Version 1)
Quarter: 2023Q2

REPORT INFORMATION
  Report Type: Spontaneous
  Country: IT (occurrence: IT)
  Receive Date: 20230616
  Receipt Date: 20230616
  Transmission Date: 20230722
  Serious: Yes (Other)
  Sender: FDA-Public Use
  Company Number: None

PATIENT
  Age: 48 Year
  Sex: Male
  Weight: 100 kg

DRUGS (5)
  1. FLUOROURACIL [Suspect]
     Active Substance: FLUOROURACIL
     Indication: Lung adenocarcinoma
     Dates: start: 20230510, end: 20230510
  2. FLUOROURACIL [Suspect]
     Active Substance: FLUOROURACIL
     Dates: start: 20230510, end: 20230510
  3. OXALIPLATIN [Suspect]
     Active Substance: OXALIPLATIN
     Indication: Lung adenocarcinoma
     Dates: start: 20230510, end: 20230510
  4. LEVOLEUCOVORIN CALCIUM [Suspect]
     Active Substance: LEVOLEUCOVORIN CALCIUM
     Indication: Lung adenocarcinoma
     Dosage: CALCIO LEVOFOLINATO
     Dates: start: 20230510, end: 20230510
  5. PANITUMUMAB [Suspect]
     Active Substance: PANITUMUMAB
     Indication: Lung adenocarcinoma
     Dates: start: 20230510, end: 20230510

REACTIONS (2)
  - Rash [Not Recovered/Not Resolved]
  - Folliculitis [Not Recovered/Not Resolved]

NARRATIVE: CASE EVENT DATE: 20230515
